FAERS Safety Report 14547313 (Version 2)
Quarter: 2018Q1

REPORT INFORMATION
  Report Type: Report from Study
  Country: JP (occurrence: JP)
  Receive Date: 20180219
  Receipt Date: 20180302
  Transmission Date: 20180509
  Serious: Yes (Hospitalization, Other)
  Sender: FDA-Public Use
  Company Number: JP-009507513-1712JPN003310J

PATIENT
  Age: 64 Year
  Sex: Male
  Weight: 46 kg

DRUGS (2)
  1. RANMARK [Concomitant]
     Active Substance: DENOSUMAB
     Indication: SQUAMOUS CELL CARCINOMA OF LUNG
     Dosage: 120 MG, QD
     Route: 065
     Dates: start: 20170529, end: 20170920
  2. KEYTRUDA [Suspect]
     Active Substance: PEMBROLIZUMAB
     Indication: SQUAMOUS CELL CARCINOMA OF LUNG
     Dosage: 200 MG, Q3W
     Route: 041
     Dates: start: 20170529

REACTIONS (2)
  - Metastases to liver [Unknown]
  - Cholangitis [Recovering/Resolving]

NARRATIVE: CASE EVENT DATE: 20170615
